FAERS Safety Report 5123866-9 (Version None)
Quarter: 2006Q4

REPORT INFORMATION
  Report Type: 
  Country: None (occurrence: None)
  Receive Date: 20061010
  Receipt Date: 20061003
  Transmission Date: 20070319
  Serious: Yes (Death, Hospitalization)
  Sender: FDA-Public Use
  Company Number: UA-GLAXOSMITHKLINE-B0441225A

PATIENT
  Age: 89 Year
  Sex: Female

DRUGS (1)
  1. FLIXOTIDE [Suspect]
     Indication: BRONCHIAL OBSTRUCTION
     Dates: start: 20060913, end: 20060921

REACTIONS (2)
  - CARDIAC DISORDER [None]
  - ORAL CANDIDIASIS [None]
